FAERS Safety Report 21321928 (Version 2)
Quarter: 2022Q4

REPORT INFORMATION
  Report Type: Spontaneous
  Country: US (occurrence: US)
  Receive Date: 20220912
  Receipt Date: 20221121
  Transmission Date: 20230113
  Serious: Yes (Other)
  Sender: FDA-Public Use
  Company Number: US-JNJFOC-20220917220

PATIENT
  Age: 46 Year
  Sex: Female

DRUGS (22)
  1. ELMIRON [Suspect]
     Active Substance: PENTOSAN POLYSULFATE SODIUM
     Indication: Cystitis interstitial
     Route: 048
     Dates: start: 201501
  2. ELMIRON [Suspect]
     Active Substance: PENTOSAN POLYSULFATE SODIUM
     Route: 048
     Dates: start: 20180430, end: 20200501
  3. ELMIRON [Suspect]
     Active Substance: PENTOSAN POLYSULFATE SODIUM
     Route: 048
     Dates: end: 202012
  4. IBUPROFEN [Concomitant]
     Active Substance: IBUPROFEN
     Indication: Migraine
     Dates: start: 2016
  5. IBUPROFEN [Concomitant]
     Active Substance: IBUPROFEN
     Indication: Analgesic therapy
  6. HYDROXYZINE [Concomitant]
     Active Substance: HYDROXYZINE HYDROCHLORIDE
     Indication: Cystitis interstitial
     Dates: start: 2018
  7. GABAPENTIN [Concomitant]
     Active Substance: GABAPENTIN
     Indication: Fibromyalgia
     Dates: start: 2015
  8. BACLOFEN [Concomitant]
     Active Substance: BACLOFEN
     Indication: Fibromyalgia
     Dates: start: 2018, end: 2020
  9. ACETAMINOPHEN\ASPIRIN\CAFFEINE [Concomitant]
     Active Substance: ACETAMINOPHEN\ASPIRIN\CAFFEINE
     Indication: Migraine
     Dates: start: 2015
  10. AMITRIPTYLINE [Concomitant]
     Active Substance: AMITRIPTYLINE
     Indication: Fibromyalgia
     Dates: start: 2015
  11. AMITRIPTYLINE [Concomitant]
     Active Substance: AMITRIPTYLINE
     Indication: Cystitis interstitial
  12. TRAMADOL [Concomitant]
     Active Substance: TRAMADOL
     Indication: Analgesic therapy
     Dates: start: 2015
  13. VITAMIN C [Concomitant]
     Active Substance: ASCORBIC ACID
     Indication: Nutritional supplementation
     Dates: start: 2015, end: 2021
  14. FERROUS SULFATE [Concomitant]
     Active Substance: FERROUS SULFATE
     Indication: Anaemia
     Dates: start: 2015, end: 2021
  15. ALBUTEROL [Concomitant]
     Active Substance: ALBUTEROL
     Indication: Dyspnoea
     Dates: start: 2018, end: 2020
  16. ALBUTEROL [Concomitant]
     Active Substance: ALBUTEROL
     Indication: Cough
  17. LASIX [Concomitant]
     Active Substance: FUROSEMIDE
     Dates: start: 2018, end: 2019
  18. PHENTERMINE [Concomitant]
     Active Substance: PHENTERMINE
     Indication: Weight decreased
     Dates: start: 2016
  19. CARBOXYMETHYLCELLULOSE [Concomitant]
     Active Substance: CARBOXYMETHYLCELLULOSE
     Indication: Dry eye
     Route: 047
     Dates: start: 2018
  20. ZOVIRAX [Concomitant]
     Active Substance: ACYCLOVIR
     Indication: Rash
     Dates: start: 2018, end: 2019
  21. KETOROLAC [Concomitant]
     Active Substance: KETOROLAC TROMETHAMINE
     Indication: Endometriosis
     Route: 065
     Dates: start: 2015, end: 2018
  22. ZYRTEC [Concomitant]
     Active Substance: CETIRIZINE HYDROCHLORIDE
     Indication: Multiple allergies
     Dates: start: 2016

REACTIONS (1)
  - Retinal pigmentation [Unknown]

NARRATIVE: CASE EVENT DATE: 20180820
